FAERS Safety Report 11691534 (Version 1)
Quarter: 2015Q4

REPORT INFORMATION
  Report Type: Report from Study
  Country: GB (occurrence: GB)
  Receive Date: 20151102
  Receipt Date: 20151102
  Transmission Date: 20160304
  Serious: Yes (Hospitalization)
  Sender: FDA-Public Use
  Company Number: GB-ABBVIE-15P-167-1490983-00

PATIENT
  Sex: Male

DRUGS (2)
  1. DUODOPA [Suspect]
     Active Substance: CARBIDOPA\LEVODOPA
     Indication: PARKINSON^S DISEASE
     Dosage: 2.2ML/HOUR
     Route: 050
     Dates: start: 20070507
  2. DUODOPA [Suspect]
     Active Substance: CARBIDOPA\LEVODOPA
     Route: 050

REACTIONS (7)
  - Productive cough [Unknown]
  - Drug dose omission [Unknown]
  - Eructation [Unknown]
  - Retching [Unknown]
  - Lower respiratory tract infection [Recovering/Resolving]
  - Vomiting [Unknown]
  - Constipation [Unknown]
